FAERS Safety Report 20407138 (Version 1)
Quarter: 2022Q1

REPORT INFORMATION
  Report Type: Spontaneous
  Country: US (occurrence: None)
  Receive Date: 20220131
  Receipt Date: 20220131
  Transmission Date: 20220423
  Serious: Yes (Death)
  Sender: FDA-Public Use
  Company Number: None

PATIENT
  Age: 41 Year
  Sex: Female
  Weight: 47.25 kg

DRUGS (1)
  1. ZITHROMAX [Suspect]
     Active Substance: AZITHROMYCIN DIHYDRATE
     Indication: Pneumonia
     Dates: start: 20201222, end: 20201224

REACTIONS (5)
  - Cardiac arrest [None]
  - Palpitations [None]
  - Supraventricular tachycardia [None]
  - Ventricular extrasystoles [None]
  - Cardiomyopathy [None]

NARRATIVE: CASE EVENT DATE: 20201222
